FAERS Safety Report 10056086 (Version 3)
Quarter: 2014Q2

REPORT INFORMATION
  Report Type: Spontaneous
  Country: GB (occurrence: None)
  Receive Date: 20140401
  Receipt Date: 20140422
  Transmission Date: 20141212
  Serious: Yes (Other)
  Sender: FDA-Public Use
  Company Number: AUR-APL-2014-03861

PATIENT
  Age: 32 Year
  Sex: Female

DRUGS (5)
  1. NAPROXEN [Suspect]
     Indication: SPONDYLITIS
     Dates: end: 20140225
  2. IBUPROFEN (IBUPROFEN) [Suspect]
     Indication: SPONDYLITIS
     Dates: end: 20140225
  3. SIMPONI [Suspect]
     Indication: PRODUCT USED FOR UNKNOWN INDICATION
     Route: 058
     Dates: start: 201401
  4. CO-CODAMOL (PANADEINE CO) [Concomitant]
  5. LANSOPRAZOL [Concomitant]

REACTIONS (10)
  - Abdominal pain [None]
  - Haematochezia [None]
  - Convulsion [None]
  - Anti-transglutaminase antibody increased [None]
  - Diarrhoea [None]
  - Vomiting [None]
  - Loss of consciousness [None]
  - White blood cell count increased [None]
  - Neutrophil count abnormal [None]
  - Serum ferritin abnormal [None]
